FAERS Safety Report 20967425 (Version 1)
Quarter: 2022Q2

REPORT INFORMATION
  Report Type: Report from Study
  Country: US (occurrence: US)
  Receive Date: 20220616
  Receipt Date: 20220616
  Transmission Date: 20220721
  Serious: Yes (Hospitalization, Other)
  Sender: FDA-Public Use
  Company Number: US-VERTEX PHARMACEUTICALS-2022-005791

PATIENT
  Age: 16 Year
  Sex: Male
  Weight: 55 kg

DRUGS (27)
  1. TRIKAFTA [Suspect]
     Active Substance: ELEXACAFTOR\IVACAFTOR\TEZACAFTOR
     Indication: Cystic fibrosis
     Dosage: 2 TABS IN AM AND 1 TAB IN PM
     Route: 048
     Dates: start: 20191228
  2. TRIKAFTA [Suspect]
     Active Substance: ELEXACAFTOR\IVACAFTOR\TEZACAFTOR
     Dosage: 2 ORANGE TABS ON ODD DAYS OF MONTH; 1 ORANGE TAB ON EVEN DAYS
     Route: 048
     Dates: start: 20220422, end: 2022
  3. TRIKAFTA [Suspect]
     Active Substance: ELEXACAFTOR\IVACAFTOR\TEZACAFTOR
     Dosage: FULL DOSE
     Route: 048
     Dates: start: 20220407
  4. URSODIOL [Concomitant]
     Active Substance: URSODIOL
     Indication: Bile duct stone
     Dosage: 2 CAPSULES, TWICE A DAY
     Route: 048
  5. LACTASE [Concomitant]
     Active Substance: LACTASE
     Dosage: 3000 UNITS, AS INDICATED AS NEEDED FOR DIETARY SUPPLEMENT
     Route: 048
  6. MIRALAX [Concomitant]
     Active Substance: POLYETHYLENE GLYCOL 3350
     Dosage: 17 GRAM, QD
     Route: 048
  7. ACETAMINOPHEN [Concomitant]
     Active Substance: ACETAMINOPHEN
     Indication: Pain
     Dosage: 325 MG, EVERY 6 HOURS AS NEEDED
     Route: 048
  8. ALBUTEROL [Concomitant]
     Active Substance: ALBUTEROL
     Indication: Dyspnoea
     Dosage: 2.5 MG/3 ML, TWICE A DAY AS NEEDED
  9. ALBUTEROL [Concomitant]
     Active Substance: ALBUTEROL
     Indication: Wheezing
  10. CHOLECALCIFEROL [Concomitant]
     Active Substance: CHOLECALCIFEROL
     Dosage: 100 MICROGRAM, 2 TABS EVENRY DAY
     Route: 048
  11. PULMOZYME [Concomitant]
     Active Substance: DORNASE ALFA
     Dosage: MG/ ML SOLUTION, EVERYDAY
  12. FLONASE [Concomitant]
     Active Substance: FLUTICASONE PROPIONATE
     Indication: Nasal congestion
     Dosage: 1 SPRAY, EVERY DAY AS NEEDED
     Route: 045
  13. GABAPENTIN [Concomitant]
     Active Substance: GABAPENTIN
     Dosage: 300 MG, QD
     Route: 048
  14. HYOSCYAMINE [Concomitant]
     Active Substance: HYOSCYAMINE
     Indication: Abdominal pain
     Dosage: 0.125 MG, QID
     Route: 048
  15. MELATONIN [Concomitant]
     Active Substance: MELATONIN
     Indication: Insomnia
     Dosage: 5 MG, QD
     Route: 048
  16. OMEPRAZOLE [Concomitant]
     Active Substance: OMEPRAZOLE
     Dosage: 20 MG, QD
     Route: 048
  17. PERTZYE [Concomitant]
     Active Substance: PANCRELIPASE AMYLASE\PANCRELIPASE LIPASE\PANCRELIPASE PROTEASE
     Dosage: 24,000 UNITS 86,250 UNITS 90,750 UNITS
     Route: 048
  18. SODIUM CHLORIDE [Concomitant]
     Active Substance: SODIUM CHLORIDE
     Indication: Dyspnoea
     Dosage: 3 MILLILITER, BID
  19. SODIUM CHLORIDE [Concomitant]
     Active Substance: SODIUM CHLORIDE
     Indication: Wheezing
  20. FLUTICASONE PROPIONATE [Concomitant]
     Active Substance: FLUTICASONE PROPIONATE
     Dosage: 50 MICROGRAM
     Route: 045
  21. NEURONTIN [Concomitant]
     Active Substance: GABAPENTIN
     Dosage: 300 MICROGRAM, QD
     Route: 048
  22. BACIIM [Concomitant]
     Active Substance: BACITRACIN
     Dosage: 3 MG
     Route: 045
  23. DEXTROSE [Concomitant]
     Active Substance: DEXTROSE
     Indication: Hypoglycaemia
     Dosage: 4 GRAM  TABLET CHEWABLE
  24. HYOSCYAMINE SULFATE [Concomitant]
     Active Substance: HYOSCYAMINE SULFATE
     Indication: Abdominal pain
     Dosage: 0.125 MILLIGRAM, 4 TIMES DAILY
  25. HUMALOG [Concomitant]
     Active Substance: INSULIN LISPRO
     Dosage: 100UNIT/ML.
     Route: 058
  26. CETIRIZINE [Concomitant]
     Active Substance: CETIRIZINE HYDROCHLORIDE
     Dosage: 10 MG
  27. AMITIZA [Concomitant]
     Active Substance: LUBIPROSTONE
     Dosage: 8 MICROGRAM, BID
     Route: 048

REACTIONS (7)
  - Bile duct stone [Unknown]
  - Constipation [Not Recovered/Not Resolved]
  - Infective pulmonary exacerbation of cystic fibrosis [Unknown]
  - Viral infection [Unknown]
  - Cystic fibrosis related diabetes [Not Recovered/Not Resolved]
  - Pulmonary function test decreased [Recovered/Resolved]
  - Upper respiratory tract infection [Unknown]

NARRATIVE: CASE EVENT DATE: 20220325
